FAERS Safety Report 7333153-6 (Version None)
Quarter: 2011Q1

REPORT INFORMATION
  Report Type: 
  Country: None (occurrence: None)
  Receive Date: 20110304
  Receipt Date: 20110223
  Transmission Date: 20110831
  Serious: Yes (Hospitalization)
  Sender: FDA-Public Use
  Company Number: US-ASTRAZENECA-2011SE10556

PATIENT
  Age: 53 Year
  Sex: Female

DRUGS (2)
  1. SYMBICORT [Suspect]
     Indication: BRONCHITIS
     Dosage: 160/4.5 UG BID
     Route: 055
  2. SYMBICORT [Suspect]
     Indication: LUNG DISORDER
     Dosage: 160/4.5 UG BID
     Route: 055

REACTIONS (2)
  - PNEUMONIA [None]
  - PRODUCTIVE COUGH [None]
